FAERS Safety Report 16847189 (Version 1)
Quarter: 2019Q3

REPORT INFORMATION
  Report Type: Spontaneous
  Country: SE (occurrence: SE)
  Receive Date: 20190924
  Receipt Date: 20190924
  Transmission Date: 20191005
  Serious: Yes (Hospitalization)
  Sender: FDA-Public Use
  Company Number: SE-ALLERGAN-1000013800

PATIENT
  Sex: Male

DRUGS (4)
  1. BRUFEN [Concomitant]
     Active Substance: IBUPROFEN
     Dosage: 600 MG, UNK
  2. ALVEDON [Concomitant]
     Active Substance: ACETAMINOPHEN
     Dosage: 1000 MG, UNK
  3. BAKLOFEN [Concomitant]
     Active Substance: BACLOFEN
     Dosage: 10 MG, UNK
  4. ESCITALOPRAM OXALATE - BP [Suspect]
     Active Substance: ESCITALOPRAM OXALATE
     Indication: DEPRESSED MOOD
     Dosage: 10 MG
     Route: 048
     Dates: start: 20100120, end: 20100120

REACTIONS (1)
  - Cerebral infarction [Recovered/Resolved with Sequelae]

NARRATIVE: CASE EVENT DATE: 20100121
